FAERS Safety Report 25368200 (Version 2)
Quarter: 2025Q4

REPORT INFORMATION
  Report Type: Spontaneous
  Country: EU (occurrence: EU)
  Receive Date: 20250528
  Receipt Date: 20251218
  Transmission Date: 20260117
  Serious: Yes (Other)
  Sender: ROCHE
  Company Number: None

PATIENT
  Age: 27 Year
  Sex: Female

DRUGS (11)
  1. CAPECITABINE [Suspect]
     Active Substance: CAPECITABINE
     Indication: Colorectal adenocarcinoma
  2. BEVACIZUMAB [Suspect]
     Active Substance: BEVACIZUMAB
     Indication: Colorectal adenocarcinoma
  3. BEVACIZUMAB [Suspect]
     Active Substance: BEVACIZUMAB
  4. BEVACIZUMAB [Suspect]
     Active Substance: BEVACIZUMAB
     Dates: start: 202202
  5. IRINOTECAN HYDROCHLORIDE [Suspect]
     Active Substance: IRINOTECAN HYDROCHLORIDE
     Indication: Colorectal adenocarcinoma
  6. TIPIRACIL HYDROCHLORIDE\TRIFLURIDINE [Suspect]
     Active Substance: TIPIRACIL HYDROCHLORIDE\TRIFLURIDINE
     Indication: Colorectal adenocarcinoma
     Dosage: 28-DAY CYCLES
     Dates: end: 202307
  7. LEUCOVORIN [Suspect]
     Active Substance: LEUCOVORIN\LEUCOVORIN CALCIUM
     Indication: Colorectal adenocarcinoma
  8. FLUOROURACIL [Suspect]
     Active Substance: FLUOROURACIL
     Indication: Colorectal adenocarcinoma
  9. OXALIPLATIN [Suspect]
     Active Substance: OXALIPLATIN
     Indication: Colorectal adenocarcinoma
  10. GCSF TYPE GROWTH FACTORS (UNK INGREDIENTS) [Concomitant]
  11. CIPROFLOXACIN [Concomitant]
     Active Substance: CIPROFLOXACIN

REACTIONS (4)
  - Disease progression [Unknown]
  - Neutropenia [Unknown]
  - Neuropathy peripheral [Not Recovered/Not Resolved]
  - Diarrhoea [Unknown]

NARRATIVE: CASE EVENT DATE: 20211101
